FAERS Safety Report 7569197-9 (Version None)
Quarter: 2011Q2

REPORT INFORMATION
  Report Type: 
  Country: None (occurrence: None)
  Receive Date: 20110623
  Receipt Date: 20110610
  Transmission Date: 20111010
  Serious: No
  Sender: FDA-Public Use
  Company Number: PHHY2011US38991

PATIENT
  Sex: Female
  Weight: 114.6 kg

DRUGS (14)
  1. TASIGNA [Suspect]
     Indication: CHRONIC MYELOID LEUKAEMIA
     Dosage: 300 MG, BID
     Route: 048
     Dates: start: 20110331
  2. ACIPHEX [Concomitant]
     Dosage: 20 MG, UNK
  3. CALCIUM CARBONATE [Concomitant]
  4. BETAMETHASONE DIPROPIONATE [Concomitant]
  5. GABAPENTIN [Concomitant]
     Dosage: 100 MG, UNK
  6. FERROUS SULFATE TAB [Concomitant]
     Dosage: 325 MG, UNK
  7. FUROSEMIDE [Concomitant]
     Dosage: 20 MG, UNK
  8. LEVOTHYROXINE SODIUM [Concomitant]
     Dosage: 100 MG, UNK
  9. LIDOCAINE [Concomitant]
  10. OXYCOD [Concomitant]
     Dosage: 5-325 MG
  11. CLONIDINE [Concomitant]
     Dosage: 0.1 MG, UNK
  12. POTASSIUM PHOSPHATES [Concomitant]
  13. FIBER-LAX [Concomitant]
     Dosage: 0.52 G, UNK
  14. ASCORBIC ACID [Concomitant]
     Dosage: 500 MG, UNK

REACTIONS (4)
  - OROPHARYNGEAL PAIN [None]
  - DRY MOUTH [None]
  - LIP BLISTER [None]
  - ORAL PAIN [None]
